FAERS Safety Report 7507201 (Version 3)
Quarter: 2013Q1

REPORT INFORMATION
  Report Type: Report from Study
  Country: DE (occurrence: DE)
  Receive Date: 20100729
  Receipt Date: 20130122
  Transmission Date: 20140127
  Serious: Yes (Other)
  Sender: FDA-Public Use
  Company Number: DE-ABBOTT-10P-062-0659390-00

PATIENT
  Age: 47 Year
  Sex: Male
  Weight: 91 kg

DRUGS (3)
  1. KALETRA TABLETS [Suspect]
     Indication: HIV INFECTION
     Dosage: 2X2
     Route: 048
     Dates: start: 20090717
  2. TRUVADA [Concomitant]
     Indication: PRODUCT USED FOR UNKNOWN INDICATION
     Dosage: 1X1
     Route: 048
     Dates: start: 20090717
  3. KVX [Concomitant]
     Indication: PRODUCT USED FOR UNKNOWN INDICATION
     Dates: start: 20100729

REACTIONS (13)
  - Hepatic enzyme increased [Not Recovered/Not Resolved]
  - Hepatic cirrhosis [Not Recovered/Not Resolved]
  - Diarrhoea [Unknown]
  - Mental status changes [Unknown]
  - Blood cholesterol abnormal [Unknown]
  - Aspartate aminotransferase abnormal [Unknown]
  - Alanine aminotransferase abnormal [Unknown]
  - Blood alkaline phosphatase abnormal [Unknown]
  - Pyrexia [Unknown]
  - Blood creatinine abnormal [Unknown]
  - Gamma-glutamyltransferase abnormal [Unknown]
  - Fatigue [Unknown]
  - Hyperbilirubinaemia [Unknown]
